FAERS Safety Report 4356482-7 (Version None)
Quarter: 2004Q2

REPORT INFORMATION
  Report Type: 
  Country: None (occurrence: None)
  Receive Date: 20040512
  Receipt Date: 20040419
  Transmission Date: 20050107
  Serious: Yes (Death, Hospitalization, Other)
  Sender: FDA-Public Use
  Company Number: 200411405JP

PATIENT
  Sex: Female

DRUGS (6)
  1. ARAVA [Suspect]
     Route: 048
     Dates: start: 20031208, end: 20040120
  2. LOXONIN [Concomitant]
     Route: 048
  3. TAKEPRON [Concomitant]
     Route: 048
  4. BENET [Concomitant]
     Route: 048
  5. PREDONINE [Concomitant]
     Route: 048
  6. LENDORM [Concomitant]
     Route: 048

REACTIONS (4)
  - ANOREXIA [None]
  - C-REACTIVE PROTEIN INCREASED [None]
  - COLON CANCER [None]
  - DRUG INEFFECTIVE [None]
